FAERS Safety Report 7330222-1 (Version None)
Quarter: 2011Q1

REPORT INFORMATION
  Report Type: 
  Country: None (occurrence: None)
  Receive Date: 20110303
  Receipt Date: 20110119
  Transmission Date: 20110831
  Serious: Yes (Death, Life-Threatening, Other)
  Sender: FDA-Public Use
  Company Number: US-BAXTER-2010BH024372

PATIENT
  Age: 58 Year
  Sex: Female
  Weight: 88 kg

DRUGS (51)
  1. HEPARIN SODIUM INJECTION [Suspect]
     Indication: CATHETER PLACEMENT
     Route: 042
     Dates: start: 20080301, end: 20080301
  2. HEPARIN SODIUM INJECTION [Suspect]
     Route: 010
     Dates: start: 20080305, end: 20080305
  3. HEPARIN SODIUM INJECTION [Suspect]
     Route: 010
     Dates: start: 20080308, end: 20080308
  4. HEPARIN SODIUM INJECTION [Suspect]
     Route: 065
     Dates: start: 20080318, end: 20080318
  5. HEPARIN SODIUM INJECTION [Suspect]
     Route: 065
     Dates: start: 20080318, end: 20080318
  6. HUMALOG [Concomitant]
     Indication: PRODUCT USED FOR UNKNOWN INDICATION
     Route: 058
  7. HEPARIN SODIUM INJECTION [Suspect]
     Indication: MYOCARDIAL INFARCTION
     Route: 042
     Dates: start: 20080301, end: 20080301
  8. HEPARIN SODIUM INJECTION [Suspect]
     Route: 042
     Dates: start: 20080301, end: 20080301
  9. HEPARIN SODIUM INJECTION [Suspect]
     Route: 065
  10. KAYEXALATE [Concomitant]
     Indication: PRODUCT USED FOR UNKNOWN INDICATION
     Route: 065
  11. LASIX [Concomitant]
     Indication: PRODUCT USED FOR UNKNOWN INDICATION
     Route: 048
  12. HEPARIN SODIUM INJECTION [Suspect]
     Route: 058
     Dates: start: 20080301, end: 20080301
  13. HEPARIN SODIUM INJECTION [Suspect]
     Route: 065
  14. HEPARIN SODIUM INJECTION [Suspect]
     Route: 010
     Dates: start: 20080307, end: 20080307
  15. PROCRIT [Concomitant]
     Indication: PRODUCT USED FOR UNKNOWN INDICATION
     Route: 065
  16. AMLODIPINE [Concomitant]
     Indication: PRODUCT USED FOR UNKNOWN INDICATION
     Route: 048
  17. HEPARIN SODIUM INJECTION [Suspect]
     Route: 010
     Dates: start: 20080305, end: 20080305
  18. HEPARIN SODIUM INJECTION [Suspect]
     Route: 065
     Dates: start: 20080318, end: 20080318
  19. HEPARIN SODIUM INJECTION [Suspect]
     Route: 065
     Dates: start: 20080318, end: 20080318
  20. NOVOLIN N [Concomitant]
     Indication: PRODUCT USED FOR UNKNOWN INDICATION
     Route: 058
  21. SORBITOL [Concomitant]
     Indication: PRODUCT USED FOR UNKNOWN INDICATION
     Route: 065
  22. CLONIDINE [Concomitant]
     Indication: PRODUCT USED FOR UNKNOWN INDICATION
     Route: 048
  23. ASPIRIN [Concomitant]
     Indication: PRODUCT USED FOR UNKNOWN INDICATION
     Route: 048
  24. HEPARIN SODIUM INJECTION [Suspect]
     Route: 065
     Dates: start: 20080318, end: 20080318
  25. HEPARIN SODIUM 5,000 UNITS IN DEXTROSE 5% [Suspect]
     Indication: HYPERCOAGULATION
     Route: 042
     Dates: start: 20080301, end: 20080301
  26. HEPARIN SODIUM INJECTION [Suspect]
     Indication: ARTERIOVENOUS FISTULA OPERATION
     Route: 042
     Dates: start: 20080301, end: 20080301
  27. HEPARIN SODIUM INJECTION [Suspect]
     Route: 042
     Dates: start: 20080301, end: 20080301
  28. HEPARIN SODIUM INJECTION [Suspect]
     Route: 010
     Dates: start: 20080307, end: 20080307
  29. HEPARIN SODIUM INJECTION [Suspect]
     Route: 010
     Dates: start: 20080307, end: 20080307
  30. HEPARIN SODIUM INJECTION [Suspect]
     Route: 010
     Dates: start: 20080315, end: 20080315
  31. HEPARIN SODIUM INJECTION [Suspect]
     Route: 010
     Dates: start: 20080315, end: 20080315
  32. HEPARIN SODIUM INJECTION [Suspect]
     Route: 065
     Dates: start: 20080318, end: 20080318
  33. HEPARIN SODIUM INJECTION [Suspect]
     Route: 010
     Dates: start: 20080325, end: 20080325
  34. HEPARIN SODIUM INJECTION [Suspect]
     Route: 010
     Dates: start: 20080325, end: 20080325
  35. BACTROBAN [Concomitant]
     Indication: PRODUCT USED FOR UNKNOWN INDICATION
     Route: 065
  36. VASOTEC [Concomitant]
     Indication: PRODUCT USED FOR UNKNOWN INDICATION
     Route: 048
  37. HEPARIN SODIUM INJECTION [Suspect]
     Route: 042
     Dates: start: 20080301, end: 20080301
  38. NEPHRO-VITE RX [Concomitant]
     Indication: PRODUCT USED FOR UNKNOWN INDICATION
     Route: 065
  39. PLAVIX [Concomitant]
     Indication: PRODUCT USED FOR UNKNOWN INDICATION
     Route: 065
  40. HEPARIN SODIUM INJECTION [Suspect]
     Route: 058
     Dates: start: 20080301, end: 20080301
  41. HEPARIN SODIUM INJECTION [Suspect]
     Route: 058
     Dates: start: 20080301, end: 20080301
  42. HEPARIN SODIUM INJECTION [Suspect]
     Route: 065
  43. HEPARIN SODIUM INJECTION [Suspect]
     Route: 010
     Dates: start: 20080305, end: 20080305
  44. HEPARIN SODIUM INJECTION [Suspect]
     Route: 010
     Dates: start: 20080308, end: 20080308
  45. HEPARIN SODIUM INJECTION [Suspect]
     Route: 010
     Dates: start: 20080308, end: 20080308
  46. HEPARIN SODIUM INJECTION [Suspect]
     Route: 010
     Dates: start: 20080315, end: 20080315
  47. HEPARIN SODIUM INJECTION [Suspect]
     Route: 010
     Dates: start: 20080325, end: 20080325
  48. HEPARIN SODIUM 5,000 UNITS IN DEXTROSE 5% [Suspect]
     Route: 042
     Dates: start: 20080301, end: 20080301
  49. ASPIRIN [Concomitant]
     Indication: PRODUCT USED FOR UNKNOWN INDICATION
     Route: 065
  50. NOVOLOG [Concomitant]
     Indication: PRODUCT USED FOR UNKNOWN INDICATION
     Route: 065
  51. PHOSLO [Concomitant]
     Indication: PRODUCT USED FOR UNKNOWN INDICATION
     Route: 065

REACTIONS (32)
  - VENTRICULAR TACHYCARDIA [None]
  - THROMBOSIS IN DEVICE [None]
  - PERIPHERAL ISCHAEMIA [None]
  - GASTRITIS [None]
  - THROMBOSIS [None]
  - CHOLELITHIASIS [None]
  - PNEUMONIA [None]
  - RENAL FAILURE [None]
  - CARDIAC ARREST [None]
  - ANAEMIA [None]
  - SEPSIS [None]
  - ACUTE MYOCARDIAL INFARCTION [None]
  - GANGRENE [None]
  - HYPERCOAGULATION [None]
  - DECUBITUS ULCER [None]
  - URINARY TRACT INFECTION ENTEROCOCCAL [None]
  - HEPARIN-INDUCED THROMBOCYTOPENIA [None]
  - INTESTINAL PERFORATION [None]
  - DEEP VEIN THROMBOSIS [None]
  - ACINETOBACTER INFECTION [None]
  - BRADYCARDIA [None]
  - GASTRIC ULCER [None]
  - METABOLIC ENCEPHALOPATHY [None]
  - BRONCHITIS [None]
  - GENERAL PHYSICAL HEALTH DETERIORATION [None]
  - LEUKOCYTOSIS [None]
  - GASTROINTESTINAL PERFORATION [None]
  - RESPIRATORY FAILURE [None]
  - VENOUS OCCLUSION [None]
  - RECTAL ULCER [None]
  - RECTAL HAEMORRHAGE [None]
  - BILE DUCT OBSTRUCTION [None]
